FAERS Safety Report 12142198 (Version 2)
Quarter: 2016Q3

REPORT INFORMATION
  Report Type: Report from Study
  Country: CA (occurrence: CA)
  Receive Date: 20160303
  Receipt Date: 20160805
  Transmission Date: 20161109
  Serious: Yes (Hospitalization)
  Sender: FDA-Public Use
  Company Number: CA-ABBVIE-16P-028-1573409-00

PATIENT
  Age: 70 Year
  Sex: Female

DRUGS (16)
  1. M-ESLON [Concomitant]
     Active Substance: MORPHINE SULFATE
     Indication: PRODUCT USED FOR UNKNOWN INDICATION
     Dosage: 3 TABLETS DAILY; I QTS OF 90 30 DAY INTERVAL DEC 20; QTY:270 TABS; REPEATS: 0
     Dates: start: 20160517
  2. RATIO-EMTEC [Concomitant]
     Indication: PRODUCT USED FOR UNKNOWN INDICATION
     Dosage: 1?2 TABS Q 4 HRS PRN DJSP I OTS OF 1 BO 0 30 DAYS; OTY 540 TABS; REPEATS: 0
     Dates: start: 20160727
  3. OXAZEPAM. [Concomitant]
     Active Substance: OXAZEPAM
     Indication: PRODUCT USED FOR UNKNOWN INDICATION
     Dosage: 1 TABLET 8ID 1/2 TABLET AT NIGHT QTY:90;REPEATS:2
     Dates: start: 20160727
  4. GRAVOL [Concomitant]
     Active Substance: DIMENHYDRINATE
     Indication: PRODUCT USED FOR UNKNOWN INDICATION
  5. NORVASC [Concomitant]
     Active Substance: AMLODIPINE BESYLATE
     Indication: PRODUCT USED FOR UNKNOWN INDICATION
     Dosage: 5MG ONE TABLET DAILY QTY-3 MOS REPEATS?3
     Dates: start: 20160224
  6. PEG 3350 [Concomitant]
     Active Substance: POLYETHYLENE GLYCOL 3350
     Indication: PRODUCT USED FOR UNKNOWN INDICATION
     Dosage: TAKE 17 GRAMS A DAY QTY 3 MOS REPEATS:3
  7. GABAPENTIN. [Concomitant]
     Active Substance: GABAPENTIN
     Indication: PRODUCT USED FOR UNKNOWN INDICATION
     Dosage: QTY 3 MPS REPEATS-3
     Dates: start: 20160517
  8. ELTROXIN [Concomitant]
     Active Substance: LEVOTHYROXINE
  9. LOSEC [Concomitant]
     Active Substance: OMEPRAZOLE
     Dosage: SM QTY:3 MOS REPEATS?3
     Dates: start: 20160217
  10. MAVIK [Suspect]
     Active Substance: TRANDOLAPRIL
     Dosage: DAILY DOSE: 2 MG; QTY:3 MOS REPEATS:3
     Route: 048
     Dates: start: 20160217
  11. LOSEC [Concomitant]
     Active Substance: OMEPRAZOLE
     Indication: PRODUCT USED FOR UNKNOWN INDICATION
  12. IMITREX [Concomitant]
     Active Substance: SUMATRIPTAN SUCCINATE
     Indication: PRODUCT USED FOR UNKNOWN INDICATION
     Dosage: AS DIRECTED QTY:30 REPEATS:0
     Dates: start: 20151110
  13. TYLENOL [Concomitant]
     Active Substance: ACETAMINOPHEN
     Indication: PRODUCT USED FOR UNKNOWN INDICATION
  14. MAVIK [Suspect]
     Active Substance: TRANDOLAPRIL
     Indication: HYPERTENSION
     Dosage: 1 MG DAILY; QTY:3 MOS REPEATS: 3
     Route: 048
     Dates: start: 20160118, end: 20160216
  15. PREMARIN [Concomitant]
     Active Substance: ESTROGENS, CONJUGATED
     Indication: PRODUCT USED FOR UNKNOWN INDICATION
  16. ELTROXIN [Concomitant]
     Active Substance: LEVOTHYROXINE
     Indication: PRODUCT USED FOR UNKNOWN INDICATION

REACTIONS (6)
  - Angioedema [Recovering/Resolving]
  - Insomnia [Recovered/Resolved]
  - Dizziness [Recovered/Resolved]
  - Gingival swelling [Recovering/Resolving]
  - Anaphylactic reaction [Recovering/Resolving]
  - Hypoaesthesia [Recovered/Resolved]

NARRATIVE: CASE EVENT DATE: 20160119
